FAERS Safety Report 25888049 (Version 1)
Quarter: 2025Q4

REPORT INFORMATION
  Report Type: Spontaneous
  Country: US (occurrence: US)
  Receive Date: 20251007
  Receipt Date: 20251007
  Transmission Date: 20260117
  Serious: No
  Sender: ELI LILLY AND COMPANY
  Company Number: US-ELI_LILLY_AND_COMPANY-US202509025694

PATIENT
  Age: 70 Year
  Sex: Female

DRUGS (2)
  1. ZEPBOUND [Suspect]
     Active Substance: TIRZEPATIDE
     Indication: Product used for unknown indication
     Dosage: 2.5 MG, UNKNOWN
     Route: 058
  2. BENADRYL [Concomitant]
     Active Substance: DIPHENHYDRAMINE HYDROCHLORIDE
     Indication: Injection site exfoliation

REACTIONS (6)
  - Headache [Unknown]
  - Intentional product misuse [Unknown]
  - Pruritus [Unknown]
  - Dizziness [Unknown]
  - Injection site exfoliation [Not Recovered/Not Resolved]
  - Injection site reaction [Unknown]
